FAERS Safety Report 4930001-6 (Version None)
Quarter: 2006Q1

REPORT INFORMATION
  Report Type: 
  Country: None (occurrence: None)
  Receive Date: 20060302
  Receipt Date: 20060217
  Transmission Date: 20060701
  Serious: Yes (Other)
  Sender: FDA-Public Use
  Company Number: PHBS2006BR02843

PATIENT
  Age: 9 Year
  Sex: Female
  Weight: 34 kg

DRUGS (1)
  1. TEGRETOL [Suspect]
     Indication: PETIT MAL EPILEPSY
     Dosage: UNK, BID
     Route: 048
     Dates: start: 20060215, end: 20060217

REACTIONS (9)
  - CONDITION AGGRAVATED [None]
  - DIPLOPIA [None]
  - DIZZINESS [None]
  - EYE MOVEMENT DISORDER [None]
  - HYPERSOMNIA [None]
  - MUSCLE RIGIDITY [None]
  - PETIT MAL EPILEPSY [None]
  - SOMNOLENCE [None]
  - VOMITING [None]
